FAERS Safety Report 11977363 (Version 2)
Quarter: 2016Q2

REPORT INFORMATION
  Report Type: Report from Study
  Country: US (occurrence: US)
  Receive Date: 20160129
  Receipt Date: 20160421
  Transmission Date: 20160815
  Serious: No
  Sender: FDA-Public Use
  Company Number: US-AMGEN-USASP2015130961

PATIENT
  Age: 76 Year
  Sex: Female

DRUGS (2)
  1. REPATHA [Suspect]
     Active Substance: EVOLOCUMAB
     Indication: HYPERCHOLESTEROLAEMIA
     Dosage: 140 MG, Q2WK
     Route: 065
     Dates: start: 20151124
  2. REPATHA [Suspect]
     Active Substance: EVOLOCUMAB
     Dosage: UNK
     Route: 065
     Dates: start: 20151125

REACTIONS (13)
  - Mastication disorder [Unknown]
  - Pain in jaw [Unknown]
  - Malaise [Unknown]
  - Rash [Unknown]
  - Weight bearing difficulty [Recovering/Resolving]
  - Arthritis [Unknown]
  - Pruritus [Recovered/Resolved]
  - Arthralgia [Unknown]
  - Fatigue [Unknown]
  - Skin tightness [Unknown]
  - Discomfort [Unknown]
  - Urticaria [Not Recovered/Not Resolved]
  - Feeling abnormal [Unknown]

NARRATIVE: CASE EVENT DATE: 2015
